FAERS Safety Report 9186023 (Version 1)
Quarter: 2013Q1

REPORT INFORMATION
  Report Type: Spontaneous
  Country: US (occurrence: None)
  Receive Date: 20120628
  Receipt Date: 20120628
  Transmission Date: 20140127
  Serious: Yes (Hospitalization, Other)
  Sender: FDA-Public Use
  Company Number: PHEH2012US008467

PATIENT
  Age: 34 Year
  Sex: Male

DRUGS (5)
  1. RECLAST [Suspect]
  2. XANAX (ALPRAZOLAM) [Concomitant]
  3. ALBUTEROL (SALBUTAMOL) [Concomitant]
  4. MELOXICAM (MELOXICAM) [Concomitant]
  5. PERCACID (PERCACID) [Concomitant]

REACTIONS (5)
  - Abdominal pain upper [None]
  - Bone pain [None]
  - Drug administration error [None]
  - Pain [None]
  - Abasia [None]
